FAERS Safety Report 4414690-0 (Version None)
Quarter: 2004Q3

REPORT INFORMATION
  Report Type: 
  Country: None (occurrence: None)
  Receive Date: 20040729
  Receipt Date: 20040723
  Transmission Date: 20050211
  Serious: Yes (Hospitalization)
  Sender: FDA-Public Use
  Company Number: 2004AC00185

PATIENT
  Age: 19 Year
  Sex: Female

DRUGS (4)
  1. QUETIAPINE [Suspect]
     Dosage: 14000 MG PO
     Route: 048
  2. DIVALPROEX SODIUM [Concomitant]
  3. GABAPENTIN [Concomitant]
  4. SERTRALINE HCL [Concomitant]

REACTIONS (5)
  - FATIGUE [None]
  - HEPATIC ENZYME INCREASED [None]
  - LETHARGY [None]
  - OVERDOSE [None]
  - SOMNOLENCE [None]
